FAERS Safety Report 18122559 (Version 1)
Quarter: 2020Q3

REPORT INFORMATION
  Report Type: Other
  Country: ES (occurrence: ES)
  Receive Date: 20200807
  Receipt Date: 20200807
  Transmission Date: 20201103
  Serious: Yes (Death, Other)
  Sender: FDA-Public Use
  Company Number: ES-GLENMARK PHARMACEUTICALS-2020GMK049020

PATIENT

DRUGS (5)
  1. LINEZOLID. [Suspect]
     Active Substance: LINEZOLID
     Indication: PYREXIA
     Dosage: 600 MILLIGRAM, BID (EVERY 12 HOURS)
     Route: 042
     Dates: start: 20200506, end: 20200513
  2. GABAPENTIN. [Suspect]
     Active Substance: GABAPENTIN
     Indication: INTRACRANIAL PRESSURE INCREASED
     Dosage: 100 TO 300 MILLIGRAM, OD (EVERY 24 HOURS)
     Route: 065
     Dates: start: 20200519, end: 20200602
  3. CLONIDINA [CLONIDINE] [Suspect]
     Active Substance: CLONIDINE
     Indication: HYPERTENSIVE ENCEPHALOPATHY
     Dosage: 0.15 MILLIGRAM
     Route: 065
     Dates: start: 20200515, end: 20200602
  4. LINEZOLID. [Suspect]
     Active Substance: LINEZOLID
     Indication: URINARY TRACT INFECTION
     Dosage: UNK
     Route: 065
     Dates: start: 20200524, end: 20200527
  5. CEFTRIAXONA [CEFTRIAXONE] [Suspect]
     Active Substance: CEFTRIAXONE
     Indication: PRODUCT USED FOR UNKNOWN INDICATION
     Dosage: 1 GRAM
     Route: 042
     Dates: start: 20200426, end: 20200429

REACTIONS (1)
  - SJS-TEN overlap [Fatal]

NARRATIVE: CASE EVENT DATE: 20200526
